FAERS Safety Report 7343573-1 (Version None)
Quarter: 2011Q1

REPORT INFORMATION
  Report Type: 
  Country: None (occurrence: None)
  Receive Date: 20110310
  Receipt Date: 20100525
  Transmission Date: 20110831
  Serious: No
  Sender: FDA-Public Use
  Company Number: A0861181A

PATIENT
  Age: 58 Year
  Sex: Male

DRUGS (3)
  1. NICORETTE (MINT) [Suspect]
  2. ANTIBIOTICS [Concomitant]
  3. PREDNISONE [Concomitant]

REACTIONS (2)
  - INSOMNIA [None]
  - DYSPNOEA [None]
